FAERS Safety Report 8578138-7 (Version None)
Quarter: 2012Q3

REPORT INFORMATION
  Report Type: 
  Country: None (occurrence: None)
  Receive Date: 20120808
  Receipt Date: 20120730
  Transmission Date: 20120928
  Serious: Yes (Other)
  Sender: FDA-Public Use
  Company Number: SA-ACCORD-014243

PATIENT
  Age: 25 Year
  Sex: Female

DRUGS (2)
  1. LEVETIRACETAM [Suspect]
     Indication: JUVENILE MYOCLONIC EPILEPSY
     Dosage: DOSE WAS INCREASED GRADUALLY TO 1000MG TWICE DAILY
  2. VALPROATE SODIUM [Concomitant]
     Indication: JUVENILE MYOCLONIC EPILEPSY
     Dosage: VPA WAS GRADUALLY REPLACED BY LVT. THEN AGAIN RESTARTED

REACTIONS (1)
  - EPILEPSY [None]
